FAERS Safety Report 5546851-1 (Version None)
Quarter: 2007Q4

REPORT INFORMATION
  Report Type: 
  Country: None (occurrence: None)
  Receive Date: 20071211
  Receipt Date: 20071129
  Transmission Date: 20080405
  Serious: Yes (Hospitalization, Other)
  Sender: FDA-Public Use
  Company Number: JP-PFIZER INC-2007020699

PATIENT
  Sex: Male
  Weight: 70 kg

DRUGS (5)
  1. ZITHROMAX [Suspect]
     Indication: PYREXIA
  2. ZITHROMAX [Suspect]
     Dosage: DAILY DOSE:500MG
     Route: 048
     Dates: start: 20070302, end: 20070304
  3. TRANSAMIN [Concomitant]
     Route: 048
     Dates: start: 20070302, end: 20070304
  4. MUCODYNE [Concomitant]
     Route: 048
     Dates: start: 20070302, end: 20070304
  5. POLARAMINE [Concomitant]
     Route: 048
     Dates: start: 20070302, end: 20070304

REACTIONS (3)
  - FACE OEDEMA [None]
  - STEVENS-JOHNSON SYNDROME [None]
  - STOMATITIS [None]
